FAERS Safety Report 22181421 (Version 3)
Quarter: 2023Q2

REPORT INFORMATION
  Report Type: Spontaneous
  Country: US (occurrence: US)
  Receive Date: 20230406
  Receipt Date: 20230420
  Transmission Date: 20230721
  Serious: Yes (Other)
  Sender: FDA-Public Use
  Company Number: US-INCYTE CORPORATION-2023IN002971

PATIENT

DRUGS (3)
  1. JAKAFI [Suspect]
     Active Substance: RUXOLITINIB
     Indication: Polycythaemia vera
     Dosage: 10 MILLIGRAM, QD
     Route: 048
     Dates: start: 202302, end: 20230323
  2. JAKAFI [Suspect]
     Active Substance: RUXOLITINIB
     Dosage: 10 MILLIGRAM, BID
     Route: 048
     Dates: start: 20230301
  3. JAKAFI [Suspect]
     Active Substance: RUXOLITINIB
     Dosage: 10 MILLIGRAM, BID
     Route: 048

REACTIONS (5)
  - Thrombocytopenia [Unknown]
  - Viral infection [Unknown]
  - Dizziness [Unknown]
  - Urinary tract infection [Unknown]
  - Platelet count decreased [Unknown]

NARRATIVE: CASE EVENT DATE: 20230228
